FAERS Safety Report 9440274 (Version 3)
Quarter: 2014Q1

REPORT INFORMATION
  Report Type: Report from Study
  Country: AU (occurrence: AU)
  Receive Date: 20130805
  Receipt Date: 20140123
  Transmission Date: 20141002
  Serious: Yes (Other)
  Sender: FDA-Public Use
  Company Number: PHHY2013AU083527

PATIENT
  Sex: Male

DRUGS (7)
  1. ACLASTA [Suspect]
     Dosage: 5 MG
     Route: 042
     Dates: start: 20110725
  2. ACLASTA [Suspect]
     Dosage: 5 MG
     Route: 042
     Dates: start: 20120711
  3. CITRACAL [Concomitant]
     Dosage: UNK
     Route: 048
  4. PRINIVIL [Concomitant]
     Dosage: UNK
     Route: 048
  5. LOSEC//OMEPRAZOLE [Concomitant]
     Dosage: UNK
     Route: 048
  6. CARTIA                                  /AUS/ [Concomitant]
     Dosage: UKN
     Route: 048
  7. CIPRAMIL                                /NET/ [Concomitant]
     Dosage: UKN
     Route: 048

REACTIONS (3)
  - Lung infection [Unknown]
  - Concomitant disease aggravated [Unknown]
  - Lower respiratory tract infection [Not Recovered/Not Resolved]
